FAERS Safety Report 5473127-3 (Version None)
Quarter: 2007Q4

REPORT INFORMATION
  Report Type: 
  Country: None (occurrence: None)
  Receive Date: 20071001
  Receipt Date: 20071001
  Transmission Date: 20080405
  Serious: Yes (Hospitalization)
  Sender: FDA-Public Use
  Company Number: A0684955A

PATIENT
  Age: 22 Year
  Sex: Female

DRUGS (1)
  1. ALLI [Suspect]
     Indication: WEIGHT LOSS DIET
     Route: 048
     Dates: start: 20070716, end: 20070928

REACTIONS (4)
  - ABDOMINAL PAIN UPPER [None]
  - GASTROINTESTINAL MOTILITY DISORDER [None]
  - INCISION SITE PAIN [None]
  - VOLVULUS [None]
